FAERS Safety Report 23610497 (Version 1)
Quarter: 2024Q1

REPORT INFORMATION
  Report Type: Spontaneous
  Country: US (occurrence: US)
  Receive Date: 20240308
  Receipt Date: 20240308
  Transmission Date: 20240410
  Serious: Yes (Other)
  Sender: FDA-Public Use
  Company Number: US-MYLANLABS-2024M1021035

PATIENT
  Age: 79 Year
  Sex: Female

DRUGS (4)
  1. TRIAMCINOLONE [Suspect]
     Active Substance: TRIAMCINOLONE
     Indication: Eosinophilic pneumonia chronic
     Dosage: UNK
     Route: 061
  2. TRIAMCINOLONE [Suspect]
     Active Substance: TRIAMCINOLONE
     Indication: Chronic spontaneous urticaria
  3. DOXEPIN [Suspect]
     Active Substance: DOXEPIN
     Indication: Eosinophilic pneumonia chronic
     Dosage: UNK
     Route: 065
  4. DOXEPIN [Suspect]
     Active Substance: DOXEPIN
     Indication: Chronic spontaneous urticaria

REACTIONS (3)
  - Drug ineffective [Unknown]
  - Cyanosis [Unknown]
  - Off label use [Unknown]
